FAERS Safety Report 4473674-7 (Version None)
Quarter: 2004Q3

REPORT INFORMATION
  Report Type: 
  Country: None (occurrence: None)
  Receive Date: 20040910
  Receipt Date: 20040811
  Transmission Date: 20050211
  Serious: Yes (Other)
  Sender: FDA-Public Use
  Company Number: 2004228318US

PATIENT
  Age: 58 Year
  Sex: Female
  Weight: 50.8 kg

DRUGS (3)
  1. BEXTRA [Suspect]
     Indication: PIRIFORMIS SYNDROME
     Dosage: 20 MG, BID, ORAL
     Route: 048
     Dates: start: 20040401, end: 20040701
  2. BEXTRA [Suspect]
     Indication: PIRIFORMIS SYNDROME
     Dosage: 20 MG, BID, ORAL
     Route: 048
     Dates: start: 20040801
  3. SYNTHROID [Concomitant]

REACTIONS (1)
  - VAGINAL HAEMORRHAGE [None]
